FAERS Safety Report 6171105-2 (Version None)
Quarter: 2009Q2

REPORT INFORMATION
  Report Type: 
  Country: None (occurrence: None)
  Receive Date: 20090429
  Receipt Date: 20090420
  Transmission Date: 20091009
  Serious: Yes (Other)
  Sender: FDA-Public Use
  Company Number: PHHY2009BR01277

PATIENT
  Age: 9 Year
  Sex: Female

DRUGS (1)
  1. TEGRETOL [Suspect]
     Indication: CONVULSION
     Dosage: 10 MG A.M, 10 MG P.M
     Route: 048
     Dates: end: 20090417

REACTIONS (8)
  - DYSPHAGIA [None]
  - FALL [None]
  - FEELING ABNORMAL [None]
  - HYPERHIDROSIS [None]
  - HYPOTONIA [None]
  - ORAL DISORDER [None]
  - PYREXIA [None]
  - STOMATITIS [None]
